FAERS Safety Report 15310380 (Version 1)
Quarter: 2018Q3

REPORT INFORMATION
  Report Type: Spontaneous
  Country: US (occurrence: US)
  Receive Date: 20180823
  Receipt Date: 20180823
  Transmission Date: 20181010
  Serious: No
  Sender: FDA-Public Use
  Company Number: US-JNJFOC-20180804001

PATIENT
  Age: 21 Year
  Sex: Female
  Weight: 103.87 kg

DRUGS (15)
  1. INVEGA [Suspect]
     Active Substance: PALIPERIDONE
     Indication: ATTENTION DEFICIT/HYPERACTIVITY DISORDER
     Route: 048
     Dates: start: 20180628
  2. INVEGA SUSTENNA [Suspect]
     Active Substance: PALIPERIDONE PALMITATE
     Indication: AUTISM SPECTRUM DISORDER
     Route: 030
     Dates: start: 201807, end: 20180730
  3. INVEGA SUSTENNA [Suspect]
     Active Substance: PALIPERIDONE PALMITATE
     Indication: ATTENTION DEFICIT/HYPERACTIVITY DISORDER
     Route: 030
     Dates: start: 201807, end: 20180730
  4. INVEGA SUSTENNA [Suspect]
     Active Substance: PALIPERIDONE PALMITATE
     Indication: ATTENTION DEFICIT/HYPERACTIVITY DISORDER
     Route: 030
     Dates: start: 20180709, end: 20180709
  5. INVEGA [Suspect]
     Active Substance: PALIPERIDONE
     Indication: AUTISM SPECTRUM DISORDER
     Route: 048
     Dates: start: 20180628
  6. INVEGA SUSTENNA [Suspect]
     Active Substance: PALIPERIDONE PALMITATE
     Indication: AUTISM SPECTRUM DISORDER
     Route: 030
     Dates: start: 20180709, end: 20180709
  7. INVEGA SUSTENNA [Suspect]
     Active Substance: PALIPERIDONE PALMITATE
     Indication: DISSOCIATIVE IDENTITY DISORDER
     Route: 030
     Dates: start: 20180709, end: 20180709
  8. INVEGA SUSTENNA [Suspect]
     Active Substance: PALIPERIDONE PALMITATE
     Indication: SCHIZOAFFECTIVE DISORDER BIPOLAR TYPE
     Route: 030
     Dates: start: 201807, end: 20180730
  9. THYROID [Concomitant]
     Active Substance: LEVOTHYROXINE\LIOTHYRONINE
     Indication: HYPOTHYROIDISM
     Route: 065
  10. IRON [Concomitant]
     Active Substance: IRON
     Indication: ANAEMIA
     Route: 065
  11. INVEGA [Suspect]
     Active Substance: PALIPERIDONE
     Indication: SCHIZOAFFECTIVE DISORDER BIPOLAR TYPE
     Route: 048
     Dates: start: 20180628
  12. INVEGA [Suspect]
     Active Substance: PALIPERIDONE
     Indication: DISSOCIATIVE IDENTITY DISORDER
     Route: 048
     Dates: start: 20180628
  13. METFORMIN [Concomitant]
     Active Substance: METFORMIN HYDROCHLORIDE
     Indication: METABOLIC SYNDROME
     Route: 065
  14. INVEGA SUSTENNA [Suspect]
     Active Substance: PALIPERIDONE PALMITATE
     Indication: SCHIZOAFFECTIVE DISORDER BIPOLAR TYPE
     Route: 030
     Dates: start: 20180709, end: 20180709
  15. INVEGA SUSTENNA [Suspect]
     Active Substance: PALIPERIDONE PALMITATE
     Indication: DISSOCIATIVE IDENTITY DISORDER
     Route: 030
     Dates: start: 201807, end: 20180730

REACTIONS (3)
  - Skin striae [Unknown]
  - Breast discharge [Unknown]
  - Breast enlargement [Unknown]

NARRATIVE: CASE EVENT DATE: 201807
